FAERS Safety Report 25095800 (Version 2)
Quarter: 2025Q3

REPORT INFORMATION
  Report Type: Spontaneous
  Country: EU (occurrence: EU)
  Receive Date: 20250319
  Receipt Date: 20250809
  Transmission Date: 20251020
  Serious: Yes (Hospitalization, Other)
  Sender: ALEXION PHARMACEUTICALS
  Company Number: EU-SANOFI-02435736

PATIENT
  Age: 11 Week
  Sex: Male
  Weight: 4.6 kg

DRUGS (1)
  1. NIRSEVIMAB [Suspect]
     Active Substance: NIRSEVIMAB
     Dosage: 50 MILLIGRAM, QD
     Route: 065
     Dates: start: 20241128, end: 20241128

REACTIONS (1)
  - Respiratory syncytial virus bronchiolitis [Unknown]

NARRATIVE: CASE EVENT DATE: 20250203
